FAERS Safety Report 13113329 (Version 1)
Quarter: 2017Q1

REPORT INFORMATION
  Report Type: Report from Study
  Country: US (occurrence: US)
  Receive Date: 20170113
  Receipt Date: 20170113
  Transmission Date: 20170428
  Serious: Yes (Death)
  Sender: FDA-Public Use
  Company Number: US-PFIZER INC-2017006481

PATIENT

DRUGS (3)
  1. VINCRISTINE SULFATE. [Suspect]
     Active Substance: VINCRISTINE SULFATE
     Indication: SMALL CELL LUNG CANCER
     Dosage: 1.4 MG/M2, EVERY 21 DAYS
  2. DOXORUBICIN HCL [Suspect]
     Active Substance: DOXORUBICIN HYDROCHLORIDE
     Indication: SMALL CELL LUNG CANCER
     Dosage: 45 MG/M2, EVERY 21 DAYS
  3. BIRICODAR [Suspect]
     Active Substance: BIRICODAR
     Indication: SMALL CELL LUNG CANCER
     Dosage: 120 MG/M2/H FOR 72 HOURS, EVERY 21 DAYS

REACTIONS (3)
  - Infection [Fatal]
  - Febrile neutropenia [Fatal]
  - Haematotoxicity [None]
